FAERS Safety Report 7148724-X (Version None)
Quarter: 2010Q4

REPORT INFORMATION
  Report Type: 
  Country: None (occurrence: None)
  Receive Date: 20101209
  Receipt Date: 20101206
  Transmission Date: 20110411
  Serious: Yes (Other)
  Sender: FDA-Public Use
  Company Number: IE-ROCHE-745991

PATIENT
  Sex: Male

DRUGS (6)
  1. BONIVA [Suspect]
     Indication: OSTEOPOROSIS
     Route: 048
     Dates: start: 20100101
  2. PRAVASTATIN [Concomitant]
     Route: 048
  3. BISOPROLOL FUMARATE [Concomitant]
     Indication: HYPERTENSION
     Route: 048
  4. COVERSYL [Concomitant]
     Indication: HYPERTENSION
  5. ASPIRIN [Concomitant]
     Indication: THROMBOSIS PROPHYLAXIS
     Dosage: DRUG NAME: NU SEALS ASPIRIN
     Route: 048
  6. OSTEOFOS [Concomitant]
     Indication: OSTEOPOROSIS
     Dosage: SACHETS
     Route: 048

REACTIONS (2)
  - FALL [None]
  - WRIST FRACTURE [None]
